FAERS Safety Report 14381839 (Version 2)
Quarter: 2018Q1

REPORT INFORMATION
  Report Type: Spontaneous
  Country: GB (occurrence: GB)
  Receive Date: 20180112
  Receipt Date: 20180117
  Transmission Date: 20180509
  Serious: Yes (Death)
  Sender: FDA-Public Use
  Company Number: GB-PFIZER INC-2018014466

PATIENT
  Age: 65 Year
  Sex: Female

DRUGS (5)
  1. BECLOMETHASONE [Concomitant]
     Active Substance: BECLOMETHASONE
     Indication: ASTHMA
     Dosage: UNK
     Route: 055
  2. NUROFEN (GSL) [Suspect]
     Active Substance: IBUPROFEN
     Indication: RHEUMATIC DISORDER
     Dosage: 400 MG, UNK  (TWO TABLETS)
     Dates: start: 1986
  3. PREDNISOLONE. [Concomitant]
     Active Substance: PREDNISOLONE
     Indication: ASTHMA
     Dosage: UNK
     Route: 048
  4. SALBUTAMOL [Concomitant]
     Active Substance: ALBUTEROL
     Indication: ASTHMA
     Dosage: UNK
     Route: 055
  5. PREDNISOLONE. [Concomitant]
     Active Substance: PREDNISOLONE
     Dosage: 5 MG, DAILY (REDUCED)
     Route: 048
     Dates: start: 198504

REACTIONS (1)
  - Asthma [Fatal]
